FAERS Safety Report 24196432 (Version 1)
Quarter: 2024Q3

REPORT INFORMATION
  Report Type: Report from Study
  Country: US (occurrence: US)
  Receive Date: 20240810
  Receipt Date: 20240810
  Transmission Date: 20241017
  Serious: Yes (Other)
  Sender: ELI LILLY AND CO
  Company Number: US-ELI_LILLY_AND_COMPANY-US202408002671

PATIENT
  Age: 56 Year
  Sex: Female

DRUGS (2)
  1. TIRZEPATIDE [Suspect]
     Active Substance: TIRZEPATIDE
     Indication: Weight decreased
     Dosage: 2.5 MG, WEEKLY (1/W)
     Route: 065
     Dates: start: 202209
  2. TIRZEPATIDE [Suspect]
     Active Substance: TIRZEPATIDE
     Indication: Type 2 diabetes mellitus
     Dosage: 15 MG, WEEKLY (1/W)
     Route: 065

REACTIONS (8)
  - Peroneal nerve palsy [Recovering/Resolving]
  - Neuropathy peripheral [Unknown]
  - Peroneal nerve palsy [Recovering/Resolving]
  - Neuropathy peripheral [Unknown]
  - Weight decreased [Unknown]
  - Electromyogram abnormal [Unknown]
  - Blood copper increased [Unknown]
  - Vitamin B6 decreased [Unknown]

NARRATIVE: CASE EVENT DATE: 20230401
